FAERS Safety Report 12753170 (Version 1)
Quarter: 2016Q3

REPORT INFORMATION
  Report Type: Spontaneous
  Country: DK (occurrence: DK)
  Receive Date: 20160916
  Receipt Date: 20160916
  Transmission Date: 20161109
  Serious: Yes (Other)
  Sender: FDA-Public Use
  Company Number: DK-ACCORD-044044

PATIENT
  Age: 56 Year
  Sex: Female

DRUGS (3)
  1. YELLOW FEVER VACCINE NOS [Suspect]
     Active Substance: YELLOW FEVER VIRUS STRAIN 17D-204 LIVE ANTIGEN
     Indication: PROPHYLAXIS
     Dosage: INADVERTENTLY RECEIVED YFV
     Route: 058
  2. INFLIXIMAB [Suspect]
     Active Substance: INFLIXIMAB
     Indication: CROHN^S DISEASE
     Dosage: AT WEEK 0, 2 AND 6 AND SUBSEQUENTLY EVERY 8 WEEKS
     Route: 042
     Dates: start: 201411
  3. METHOTREXATE. [Suspect]
     Active Substance: METHOTREXATE
     Indication: CROHN^S DISEASE
     Route: 058

REACTIONS (3)
  - Influenza like illness [Recovered/Resolved]
  - Medication error [Unknown]
  - Viraemia [Recovered/Resolved]
